FAERS Safety Report 4569399-X (Version None)
Quarter: 2005Q1

REPORT INFORMATION
  Report Type: 
  Country: None (occurrence: None)
  Receive Date: 20050203
  Receipt Date: 20050126
  Transmission Date: 20050727
  Serious: Yes (Other)
  Sender: FDA-Public Use
  Company Number: US-ROCHE-393762

PATIENT
  Age: 19 Year
  Sex: Female

DRUGS (3)
  1. ACCUTANE [Suspect]
     Indication: ACNE
     Route: 065
     Dates: start: 20030708, end: 20031115
  2. ISOTRETINOIN [Suspect]
     Indication: ACNE
     Route: 065
     Dates: start: 20031215, end: 20031215
  3. DEPO-PROVERA [Concomitant]
     Indication: CONTRACEPTION
     Route: 058
     Dates: end: 20030815

REACTIONS (2)
  - DRUG EXPOSURE DURING PREGNANCY [None]
  - ECTOPIC PREGNANCY [None]
